FAERS Safety Report 5711627-9 (Version None)
Quarter: 2008Q2

REPORT INFORMATION
  Report Type: 
  Country: None (occurrence: None)
  Receive Date: 20080416
  Receipt Date: 20080331
  Transmission Date: 20081010
  Serious: Yes (Hospitalization)
  Sender: FDA-Public Use
  Company Number: S08-FRA-01396-01

PATIENT
  Age: 83 Year
  Sex: Female

DRUGS (7)
  1. ESCITALOPRAM [Suspect]
     Indication: DEPRESSION
     Dates: start: 20071123, end: 20071125
  2. ZOLPIDEM TARTRATE [Suspect]
     Indication: INSOMNIA
     Dates: start: 20071123
  3. NISIS (VALSARTAN) [Concomitant]
  4. VASTAREL (TRIMETAZIDINE HYDROCHLORIDE) [Concomitant]
  5. NOOTROPYL (PIRACETAM) [Concomitant]
  6. FENOFIBRATE [Concomitant]
  7. GINKOR BILOBA/HEPTAMINOL/TROXERUTINE [Concomitant]

REACTIONS (7)
  - ARTERIOSCLEROSIS [None]
  - CONFUSIONAL STATE [None]
  - FALL [None]
  - HYPONATRAEMIA [None]
  - PITUITARY ENLARGEMENT [None]
  - SOMNOLENCE [None]
  - URINE OSMOLARITY DECREASED [None]
